FAERS Safety Report 13368464 (Version 8)
Quarter: 2019Q3

REPORT INFORMATION
  Report Type: Spontaneous
  Country: DE (occurrence: DE)
  Receive Date: 20170324
  Receipt Date: 20190802
  Transmission Date: 20191004
  Serious: Yes (Hospitalization, Other)
  Sender: FDA-Public Use
  Company Number: DE-SA-2017SA045234

PATIENT
  Age: 35 Year
  Sex: Female

DRUGS (9)
  1. LEMTRADA [Suspect]
     Active Substance: ALEMTUZUMAB
     Dosage: 12 MG,QD
     Route: 041
     Dates: start: 201703
  2. PARACETAMOL [Concomitant]
     Active Substance: ACETAMINOPHEN
     Indication: INFECTION PROPHYLAXIS
     Dosage: 1 G,QD
     Route: 042
     Dates: start: 20170313, end: 20170315
  3. CETIRIZINE [Concomitant]
     Active Substance: CETIRIZINE HYDROCHLORIDE
     Indication: PROPHYLAXIS
     Dosage: 10 MG,QD
     Route: 048
     Dates: start: 20170312, end: 20170314
  4. LEMTRADA [Suspect]
     Active Substance: ALEMTUZUMAB
     Dosage: 12 MG, QD
     Route: 041
     Dates: start: 20170423
  5. LEMTRADA [Suspect]
     Active Substance: ALEMTUZUMAB
     Indication: RELAPSING-REMITTING MULTIPLE SCLEROSIS
     Dosage: 12 MG,QD
     Route: 041
     Dates: start: 20170313, end: 20170315
  6. LEMTRADA [Suspect]
     Active Substance: ALEMTUZUMAB
     Dosage: 12MG, QD
     Dates: start: 20170424
  7. ACICLOVIR [Concomitant]
     Active Substance: ACYCLOVIR
     Indication: ANTIVIRAL PROPHYLAXIS
     Dosage: 200 MG,BID
     Route: 048
  8. METHYLPREDNISOLONE. [Concomitant]
     Active Substance: METHYLPREDNISOLONE
     Indication: PROPHYLAXIS
     Dosage: 1 G,QD
     Route: 042
     Dates: start: 20170313, end: 20170315
  9. DEKRISTOL [Concomitant]
     Active Substance: CHOLECALCIFEROL
     Dosage: 20000 IU,1 X / WEEK
     Route: 065

REACTIONS (37)
  - Hemianaesthesia [Unknown]
  - Transaminases increased [Recovered/Resolved]
  - Neutrophil percentage increased [Not Recovered/Not Resolved]
  - Lymphocyte count decreased [Not Recovered/Not Resolved]
  - Aspartate aminotransferase increased [Recovered/Resolved]
  - Eosinophil percentage decreased [Not Recovered/Not Resolved]
  - White blood cell count decreased [Not Recovered/Not Resolved]
  - Abdominal pain upper [Recovering/Resolving]
  - Vitamin D deficiency [Unknown]
  - C-reactive protein increased [Unknown]
  - Neutrophil count increased [Not Recovered/Not Resolved]
  - Blood glucose increased [Unknown]
  - Haemoglobin decreased [Unknown]
  - White blood cells urine positive [Not Recovered/Not Resolved]
  - Rash [Recovered/Resolved]
  - Hemiparesis [Unknown]
  - Dysdiadochokinesis [Unknown]
  - Blood potassium increased [Unknown]
  - JC polyomavirus test positive [Unknown]
  - Haematocrit decreased [Unknown]
  - Red blood cell count decreased [Unknown]
  - Red blood cells urine positive [Not Recovered/Not Resolved]
  - Abdominal discomfort [Unknown]
  - Liver function test increased [Recovered/Resolved]
  - Lymphocyte percentage decreased [Not Recovered/Not Resolved]
  - Condition aggravated [Unknown]
  - Hypoaesthesia [Unknown]
  - Platelet count decreased [Not Recovered/Not Resolved]
  - Alanine aminotransferase increased [Recovered/Resolved]
  - Blood thyroid stimulating hormone decreased [Unknown]
  - Gamma-glutamyltransferase increased [Recovered/Resolved]
  - Relapsing-remitting multiple sclerosis [Unknown]
  - Murphy^s sign positive [Unknown]
  - Activated partial thromboplastin time shortened [Unknown]
  - Monocyte percentage decreased [Unknown]
  - Fatigue [Unknown]
  - Genital herpes [Recovered/Resolved]

NARRATIVE: CASE EVENT DATE: 2017
